FAERS Safety Report 24176045 (Version 1)
Quarter: 2024Q3

REPORT INFORMATION
  Report Type: Report from Study
  Country: US (occurrence: None)
  Receive Date: 20240806
  Receipt Date: 20240806
  Transmission Date: 20241017
  Serious: Yes (Other)
  Sender: ASTRAZENECA
  Company Number: 2022A045091

PATIENT
  Sex: Male

DRUGS (2)
  1. CALQUENCE [Suspect]
     Active Substance: ACALABRUTINIB
     Indication: Mantle cell lymphoma
     Route: 048
     Dates: start: 20220114
  2. CALQUENCE [Suspect]
     Active Substance: ACALABRUTINIB
     Indication: Burkitt^s lymphoma stage III
     Route: 048
     Dates: start: 20220114

REACTIONS (1)
  - Renal failure [Unknown]
